FAERS Safety Report 12739386 (Version 1)
Quarter: 2016Q3

REPORT INFORMATION
  Report Type: Spontaneous
  Country: AU (occurrence: AU)
  Receive Date: 20160913
  Receipt Date: 20160913
  Transmission Date: 20161109
  Serious: Yes (Other)
  Sender: FDA-Public Use
  Company Number: AU-PFIZER INC-2016427044

PATIENT

DRUGS (1)
  1. LYRICA [Suspect]
     Active Substance: PREGABALIN
     Dosage: UNK

REACTIONS (9)
  - Suicidal ideation [Unknown]
  - Gait disturbance [Unknown]
  - Self-injurious ideation [Unknown]
  - Depression [Unknown]
  - Anxiety [Unknown]
  - Visual impairment [Unknown]
  - Paranoia [Unknown]
  - Pain [Unknown]
  - Syncope [Unknown]
